FAERS Safety Report 9864837 (Version 1)
Quarter: 2014Q1

REPORT INFORMATION
  Report Type: Spontaneous
  Country: US (occurrence: US)
  Receive Date: 20140203
  Receipt Date: 20140203
  Transmission Date: 20141002
  Serious: No
  Sender: FDA-Public Use
  Company Number: US-AMGEN-USASP2014006675

PATIENT
  Age: 81 Year
  Sex: Male

DRUGS (2)
  1. ENBREL [Suspect]
     Indication: RHEUMATOID ARTHRITIS
     Dosage: 50 MG, QWK
     Route: 065
     Dates: start: 201311
  2. ENBREL [Suspect]
     Indication: OSTEOARTHRITIS

REACTIONS (4)
  - Hearing impaired [Not Recovered/Not Resolved]
  - Finger deformity [Not Recovered/Not Resolved]
  - Injection site reaction [Unknown]
  - Injection site pain [Not Recovered/Not Resolved]
